FAERS Safety Report 9321191 (Version 1)
Quarter: 2013Q2

REPORT INFORMATION
  Report Type: Spontaneous
  Country: JP (occurrence: None)
  Receive Date: 20130528
  Receipt Date: 20130528
  Transmission Date: 20140414
  Serious: Yes (Other)
  Sender: FDA-Public Use
  Company Number: TCI2013A02697

PATIENT
  Age: 60 Year
  Sex: Female

DRUGS (1)
  1. NESINA [Suspect]
     Dosage: 1 IIN 1 D
     Route: 048
     Dates: start: 201203, end: 201207

REACTIONS (2)
  - Pancreatitis acute [None]
  - Drug-induced liver injury [None]
